FAERS Safety Report 9294226 (Version 1)
Quarter: 2013Q1

REPORT INFORMATION
  Report Type: Spontaneous
  Country: US (occurrence: None)
  Receive Date: 20121214
  Receipt Date: 20121214
  Transmission Date: 20140127
  Serious: Yes (Hospitalization)
  Sender: FDA-Public Use
  Company Number: 1110USA04579

PATIENT
  Sex: Female

DRUGS (2)
  1. JANUVIA [Suspect]
     Route: 048
  2. PRINVIL (LISINOPRIL) TABLET [Concomitant]

REACTIONS (1)
  - Swollen tongue [None]
